FAERS Safety Report 15478337 (Version 1)
Quarter: 2018Q4

REPORT INFORMATION
  Report Type: Spontaneous
  Country: US (occurrence: US)
  Receive Date: 20181009
  Receipt Date: 20181009
  Transmission Date: 20190205
  Serious: Yes (Other)
  Sender: FDA-Public Use
  Company Number: US-SA-2017SA261729

PATIENT
  Age: 55 Year
  Sex: Female
  Weight: 108.86 kg

DRUGS (9)
  1. CYTOXAN [Concomitant]
     Active Substance: CYCLOPHOSPHAMIDE
  2. NEOSAR [Concomitant]
     Active Substance: CYCLOPHOSPHAMIDE
  3. DIOVAN [Concomitant]
     Active Substance: VALSARTAN
  4. DOXORUBICIN [Concomitant]
     Active Substance: DOXORUBICIN
  5. FLORAJEN [Concomitant]
  6. TAXOTERE [Suspect]
     Active Substance: DOCETAXEL
     Indication: BREAST CANCER
     Dosage: UNK UNK,UNK
     Route: 042
     Dates: start: 20150210, end: 20150210
  7. LETROZOLE. [Concomitant]
     Active Substance: LETROZOLE
  8. TAXOTERE [Suspect]
     Active Substance: DOCETAXEL
     Dosage: UNK UNK,UNK
     Route: 042
     Dates: start: 20150428, end: 20150428
  9. CARDIZEM [DILTIAZEM HYDROCHLORIDE] [Concomitant]

REACTIONS (2)
  - Alopecia [Recovering/Resolving]
  - Psychological trauma [Unknown]

NARRATIVE: CASE EVENT DATE: 20160101
